FAERS Safety Report 16699970 (Version 1)
Quarter: 2019Q3

REPORT INFORMATION
  Report Type: Spontaneous
  Country: AU (occurrence: AU)
  Receive Date: 20190813
  Receipt Date: 20190813
  Transmission Date: 20191004
  Serious: No
  Sender: FDA-Public Use
  Company Number: AU-BEH-2019105444

PATIENT
  Age: 65 Year

DRUGS (10)
  1. PRIVIGEN [Suspect]
     Active Substance: HUMAN IMMUNOGLOBULIN G
     Dosage: 5 GR/50ML
     Route: 065
     Dates: start: 20190706
  2. PRIVIGEN [Suspect]
     Active Substance: HUMAN IMMUNOGLOBULIN G
     Dosage: 10 GR/100ML
     Route: 065
     Dates: start: 20190706
  3. PRIVIGEN [Suspect]
     Active Substance: HUMAN IMMUNOGLOBULIN G
     Dosage: 10 GR/100ML
     Route: 065
     Dates: start: 20190708
  4. PRIVIGEN [Suspect]
     Active Substance: HUMAN IMMUNOGLOBULIN G
     Dosage: 40 GR (20G/200ML)
     Route: 065
     Dates: start: 20190706
  5. PRIVIGEN [Suspect]
     Active Substance: HUMAN IMMUNOGLOBULIN G
     Dosage: 5 GR/50 ML
     Route: 065
     Dates: start: 20190708
  6. PRIVIGEN [Suspect]
     Active Substance: HUMAN IMMUNOGLOBULIN G
     Dosage: 20 GR (10G/100ML)
     Route: 065
     Dates: start: 20190719
  7. PRIVIGEN [Suspect]
     Active Substance: HUMAN IMMUNOGLOBULIN G
     Dosage: 80 GR (20G/200ML)
     Route: 065
     Dates: start: 20190719
  8. PRIVIGEN [Suspect]
     Active Substance: HUMAN IMMUNOGLOBULIN G
     Indication: IMMUNE THROMBOCYTOPENIC PURPURA
     Dosage: 110 GRAMS IN 2 DIVISIONS
     Route: 065
  9. PRIVIGEN [Suspect]
     Active Substance: HUMAN IMMUNOGLOBULIN G
     Dosage: 40 GRAM (20G/200ML)
     Route: 065
     Dates: start: 20190708
  10. PRIVIGEN [Suspect]
     Active Substance: HUMAN IMMUNOGLOBULIN G
     Dosage: 10 GR (5G/50ML)
     Route: 065
     Dates: start: 20190719

REACTIONS (4)
  - Immunisation [Unknown]
  - Hepatitis B antibody positive [Unknown]
  - Hepatitis B antibody positive [Unknown]
  - Immunisation [Unknown]

NARRATIVE: CASE EVENT DATE: 20190707
